FAERS Safety Report 10276893 (Version 3)
Quarter: 2014Q3

REPORT INFORMATION
  Report Type: Report from Study
  Country: FR (occurrence: FR)
  Receive Date: 20140703
  Receipt Date: 20140730
  Transmission Date: 20150326
  Serious: Yes (Death, Hospitalization, Other)
  Sender: FDA-Public Use
  Company Number: PHHY2013FR061078

PATIENT
  Age: 78 Year
  Sex: Female

DRUGS (3)
  1. HYDREA [Concomitant]
     Active Substance: HYDROXYUREA
     Dosage: 19 DF, QD
     Dates: start: 20130607
  2. FERRIPROX [Concomitant]
     Active Substance: DEFERIPRONE
     Indication: MYELOFIBROSIS
     Dosage: 6 DF, 6QD
     Dates: start: 20100607
  3. EXJADE [Suspect]
     Active Substance: DEFERASIROX
     Indication: MYELOFIBROSIS
     Route: 065
     Dates: start: 20080122, end: 201007

REACTIONS (4)
  - Metastases to liver [Fatal]
  - Rectal adenocarcinoma [Fatal]
  - Metastases to lung [Fatal]
  - Pulmonary embolism [Recovered/Resolved]

NARRATIVE: CASE EVENT DATE: 201202
